FAERS Safety Report 9670683 (Version 1)
Quarter: 2013Q4

REPORT INFORMATION
  Report Type: Spontaneous
  Country: AU (occurrence: AU)
  Receive Date: 20131106
  Receipt Date: 20131106
  Transmission Date: 20140711
  Serious: Yes (Other)
  Sender: FDA-Public Use
  Company Number: AU-009507513-1310AUS013939

PATIENT
  Sex: Female

DRUGS (1)
  1. EZETROL [Suspect]
     Dosage: UNK
     Route: 048
     Dates: start: 2013, end: 201310

REACTIONS (2)
  - Arthritis [Recovering/Resolving]
  - Arthralgia [Recovering/Resolving]
